FAERS Safety Report 18135613 (Version 1)
Quarter: 2020Q3

REPORT INFORMATION
  Report Type: Spontaneous
  Country: IT (occurrence: IT)
  Receive Date: 20200811
  Receipt Date: 20200811
  Transmission Date: 20201103
  Serious: Yes (Other)
  Sender: FDA-Public Use
  Company Number: IT-SA-2020SA206575

PATIENT

DRUGS (1)
  1. CLEXANE T [Suspect]
     Active Substance: ENOXAPARIN SODIUM
     Indication: KNEE OPERATION
     Dosage: 6000 KIU, QD
     Route: 058
     Dates: start: 20200717, end: 20200723

REACTIONS (1)
  - Hyperpyrexia [Recovering/Resolving]

NARRATIVE: CASE EVENT DATE: 20200717
